FAERS Safety Report 16065662 (Version 1)
Quarter: 2019Q1

REPORT INFORMATION
  Report Type: Spontaneous
  Country: IT (occurrence: IT)
  Receive Date: 20190313
  Receipt Date: 20190313
  Transmission Date: 20190418
  Serious: Yes (Hospitalization, Other)
  Sender: FDA-Public Use
  Company Number: IT-AUROBINDO-AUR-APL-2019-012498

PATIENT

DRUGS (4)
  1. LITHIUM. [Suspect]
     Active Substance: LITHIUM
     Indication: MENTAL DISORDER
     Dosage: 300 MILLIGRAM, DAILY
     Route: 048
  2. LYRICA [Suspect]
     Active Substance: PREGABALIN
     Indication: MENTAL DISORDER
     Dosage: 450 MILLIGRAM, DAILY
     Route: 048
  3. VALPROIC ACID. [Suspect]
     Active Substance: VALPROIC ACID
     Indication: MENTAL DISORDER
     Dosage: 1 GRAM, DAILY
     Route: 048
  4. QUETIAPINE. [Suspect]
     Active Substance: QUETIAPINE
     Indication: MENTAL DISORDER
     Dosage: 300 MILLIGRAM, DAILY
     Route: 048

REACTIONS (2)
  - Urinary retention [Recovering/Resolving]
  - Constipation [Recovering/Resolving]

NARRATIVE: CASE EVENT DATE: 20190222
